FAERS Safety Report 5091884-5 (Version None)
Quarter: 2006Q3

REPORT INFORMATION
  Report Type: 
  Country: None (occurrence: None)
  Receive Date: 20060825
  Receipt Date: 20060815
  Transmission Date: 20061208
  Serious: Yes (Hospitalization, Other)
  Sender: FDA-Public Use
  Company Number: 2006090695

PATIENT
  Age: 26 Year
  Sex: Male
  Weight: 66.6788 kg

DRUGS (2)
  1. SERTRALINE [Suspect]
     Indication: DEPRESSION
     Dates: end: 20050701
  2. EDRONAX (REBOXETINE) [Suspect]
     Indication: DEPRESSION
     Dosage: 4 MG (4 MG,1 IN 1 D), ORAL
     Route: 048
     Dates: start: 20050701

REACTIONS (1)
  - GASTROINTESTINAL HAEMORRHAGE [None]
